FAERS Safety Report 15019026 (Version 1)
Quarter: 2018Q2

REPORT INFORMATION
  Report Type: Spontaneous
  Country: US (occurrence: US)
  Receive Date: 20180523
  Receipt Date: 20180523
  Transmission Date: 20180711
  Serious: Yes (Death, Hospitalization)
  Sender: FDA-Public Use
  Company Number: None

PATIENT
  Age: 25 Month
  Sex: Female
  Weight: 10.7 kg

DRUGS (4)
  1. VINCRISTINE SULFATE. [Suspect]
     Active Substance: VINCRISTINE SULFATE
     Dates: end: 20110307
  2. CYTARABINE. [Suspect]
     Active Substance: CYTARABINE
     Dates: end: 20180228
  3. ONCASPAR [Suspect]
     Active Substance: PEGASPARGASE
     Dates: end: 20110303
  4. DEXAMETHASONE. [Suspect]
     Active Substance: DEXAMETHASONE
     Dates: end: 20110313

REACTIONS (5)
  - Respiratory depression [None]
  - Septic shock [None]
  - Meningitis [None]
  - Cardiac arrest [None]
  - Febrile neutropenia [None]

NARRATIVE: CASE EVENT DATE: 20110312
